FAERS Safety Report 7930593-9 (Version None)
Quarter: 2011Q4

REPORT INFORMATION
  Report Type: 
  Country: None (occurrence: None)
  Receive Date: 20111117
  Receipt Date: 20111103
  Transmission Date: 20120403
  Serious: Yes (Other)
  Sender: FDA-Public Use
  Company Number: 1103850

PATIENT
  Age: 49 Year
  Sex: Female

DRUGS (16)
  1. VINCRISTINE SULFATE [Suspect]
     Indication: EXTRANODAL NK/T-CELL LYMPHOMA, NASAL TYPE
     Dosage: 1.4 MG/M^2, INTRAVENOUS BOLUS
     Route: 040
  2. MESNA [Concomitant]
  3. FLUCONAZOLE [Concomitant]
  4. DOXORUBICIN HCL [Suspect]
     Indication: EXTRANODAL NK/T-CELL LYMPHOMA, NASAL TYPE
     Dosage: 50 MG/M^2
  5. DIPHENHYDRAMINE HCL [Concomitant]
  6. ACYCLOVIR [Concomitant]
  7. DEXAMETHASONE [Suspect]
     Indication: EXTRANODAL NK/T-CELL LYMPHOMA, NASAL TYPE
     Dosage: 40 MG/DAY, INTRAVENOUS
     Route: 042
  8. LEUCOVORIN CALCIUM [Concomitant]
  9. GANCICLOVIR [Concomitant]
  10. CYCLOPHOSPHAMIDE [Suspect]
     Indication: EXTRANODAL NK/T-CELL LYMPHOMA, NASAL TYPE
     Dosage: 300 MG/M^2, INTRAVENOUS
     Route: 042
  11. FILGRASTIM [Concomitant]
  12. CYTARABINE [Suspect]
     Indication: EXTRANODAL NK/T-CELL LYMPHOMA, NASAL TYPE
     Dosage: 100 MG, INTRATHECAL
     Route: 037
  13. ALEMTUZUMAB [Suspect]
     Indication: EXTRANODAL NK/T-CELL LYMPHOMA, NASAL TYPE
     Dosage: 30 MG, SUBCUTANEOUS
     Route: 058
  14. ACETAMINOPHEN [Concomitant]
  15. SULFAMETHOXAZOLE AND TRIMETHOPRIM [Concomitant]
  16. METHOTREXATE [Suspect]
     Indication: EXTRANODAL NK/T-CELL LYMPHOMA, NASAL TYPE
     Dosage: 12;200;800 MG, MG/M^2 INTRATHECAL
     Route: 037

REACTIONS (2)
  - CYTOMEGALOVIRUS INFECTION [None]
  - NEUTROPENIA [None]
